FAERS Safety Report 12678633 (Version 2)
Quarter: 2016Q3

REPORT INFORMATION
  Report Type: Spontaneous
  Country: TN (occurrence: TN)
  Receive Date: 20160823
  Receipt Date: 20160902
  Transmission Date: 20161109
  Serious: Yes (Death, Other)
  Sender: FDA-Public Use
  Company Number: TN-BAXTER-2016BAX043082

PATIENT
  Age: 50 Year
  Sex: Male

DRUGS (17)
  1. ETOPOSIDE. [Suspect]
     Active Substance: ETOPOSIDE
     Indication: HODGKIN^S DISEASE MIXED CELLULARITY STAGE III
     Dosage: ON DAY 1 AND DAY 8
     Route: 065
     Dates: start: 2011
  2. BLEOMYCIN [Suspect]
     Active Substance: BLEOMYCIN SULFATE
     Indication: HODGKIN^S DISEASE MIXED CELLULARITY RECURRENT
  3. DOXORUBICIN [Suspect]
     Active Substance: DOXORUBICIN
     Indication: AUTOIMMUNE HAEMOLYTIC ANAEMIA
     Dosage: ON DAY 1 AND DAY 8
     Route: 065
     Dates: start: 2011
  4. DACARBAZINE. [Suspect]
     Active Substance: DACARBAZINE
     Indication: AUTOIMMUNE HAEMOLYTIC ANAEMIA
     Route: 065
  5. VINBLASTINE [Suspect]
     Active Substance: VINBLASTINE
     Indication: AUTOIMMUNE HAEMOLYTIC ANAEMIA
  6. PREDNISONE. [Suspect]
     Active Substance: PREDNISONE
     Indication: AUTOIMMUNE HAEMOLYTIC ANAEMIA
     Dosage: ON DAY 1 AND DAY 8
     Route: 065
  7. PREDNISONE. [Suspect]
     Active Substance: PREDNISONE
     Indication: HODGKIN^S DISEASE MIXED CELLULARITY RECURRENT
  8. ENDOXAN 1G [Suspect]
     Active Substance: CYCLOPHOSPHAMIDE
     Indication: HODGKIN^S DISEASE MIXED CELLULARITY STAGE III
     Dosage: ON DAY 1 AND DAY 8
     Route: 042
     Dates: start: 2011
  9. DACARBAZINE. [Suspect]
     Active Substance: DACARBAZINE
     Indication: HODGKIN^S DISEASE MIXED CELLULARITY RECURRENT
  10. BLEOMYCIN [Suspect]
     Active Substance: BLEOMYCIN SULFATE
     Indication: HODGKIN^S DISEASE MIXED CELLULARITY STAGE III
     Dosage: ON DAY 1 AND DAY 8
     Route: 065
     Dates: start: 2011
  11. PREDNISONE. [Suspect]
     Active Substance: PREDNISONE
     Indication: HODGKIN^S DISEASE MIXED CELLULARITY STAGE III
     Dosage: HIGH DOSES
     Route: 065
  12. BLEOMYCIN [Suspect]
     Active Substance: BLEOMYCIN SULFATE
     Indication: AUTOIMMUNE HAEMOLYTIC ANAEMIA
     Route: 065
  13. DOXORUBICIN [Suspect]
     Active Substance: DOXORUBICIN
     Indication: HODGKIN^S DISEASE MIXED CELLULARITY STAGE III
     Route: 065
  14. DOXORUBICIN [Suspect]
     Active Substance: DOXORUBICIN
     Indication: HODGKIN^S DISEASE MIXED CELLULARITY RECURRENT
  15. VINCRISTINE [Suspect]
     Active Substance: VINCRISTINE
     Indication: HODGKIN^S DISEASE MIXED CELLULARITY STAGE III
     Dosage: ON DAY 1 AND DAY 8
     Route: 065
     Dates: start: 2011
  16. VINBLASTINE [Suspect]
     Active Substance: VINBLASTINE
     Indication: HODGKIN^S DISEASE MIXED CELLULARITY RECURRENT
     Route: 065
  17. PROCARBAZINE [Suspect]
     Active Substance: PROCARBAZINE
     Indication: HODGKIN^S DISEASE MIXED CELLULARITY STAGE III
     Dosage: ON DAY 1 AND DAY 8
     Route: 065
     Dates: start: 2011

REACTIONS (1)
  - Sepsis [Fatal]
